FAERS Safety Report 5962544-0 (Version None)
Quarter: 2008Q4

REPORT INFORMATION
  Report Type: 
  Country: None (occurrence: None)
  Receive Date: 20081121
  Receipt Date: 20081117
  Transmission Date: 20090506
  Serious: Yes (Other)
  Sender: FDA-Public Use
  Company Number: PHHY2008DE26406

PATIENT
  Sex: Male

DRUGS (9)
  1. RASILEZ [Suspect]
     Dosage: 300 MG, UNK
     Dates: start: 20081015, end: 20081023
  2. CARMEN [Concomitant]
     Dosage: 10 MG, QD
  3. COAPROVEL [Concomitant]
     Dosage: 300 MG, QD
  4. CYNT ^BEIERSDORF^ [Concomitant]
     Dosage: 0.3 MG, QD
  5. BISOPROLOL FUMARATE [Concomitant]
     Dosage: 10 MG, BID
  6. ASS ^CT-ARZNEIMITTEL^ [Concomitant]
     Dosage: 100 MG, QD
  7. ALLOPURINOL [Concomitant]
     Dosage: 300 MG, QD
  8. SIMVAHEXAL [Concomitant]
     Dosage: 10 MG, QD
  9. MILGAMMA [Concomitant]
     Dosage: 150 MG, BID

REACTIONS (10)
  - ANXIETY [None]
  - BURNING SENSATION [None]
  - CHILLS [None]
  - DIZZINESS [None]
  - ERYTHEMA [None]
  - EYE SWELLING [None]
  - FEAR OF DEATH [None]
  - FEELING HOT [None]
  - OEDEMA PERIPHERAL [None]
  - PRURITUS [None]
